FAERS Safety Report 8385544-2 (Version None)
Quarter: 2012Q2

REPORT INFORMATION
  Report Type: 
  Country: None (occurrence: None)
  Receive Date: 20120525
  Receipt Date: 20080415
  Transmission Date: 20120825
  Serious: No
  Sender: FDA-Public Use
  Company Number: 2008BI010340

PATIENT
  Sex: Male

DRUGS (1)
  1. TYSABRI [Suspect]
     Indication: MULTIPLE SCLEROSIS
     Route: 042
     Dates: start: 20080321, end: 20101213

REACTIONS (3)
  - GAIT DISTURBANCE [None]
  - MOBILITY DECREASED [None]
  - DEMENTIA ALZHEIMER'S TYPE [None]
